FAERS Safety Report 6447641-8 (Version None)
Quarter: 2009Q4

REPORT INFORMATION
  Report Type: 
  Country: None (occurrence: None)
  Receive Date: 20091119
  Receipt Date: 20091014
  Transmission Date: 20100525
  Serious: No
  Sender: FDA-Public Use
  Company Number: US-ALLERGAN-0914265US

PATIENT
  Sex: Male

DRUGS (1)
  1. ACZONE [Suspect]
     Indication: ACNE
     Route: 061

REACTIONS (1)
  - ACNE [None]
